FAERS Safety Report 13642022 (Version 1)
Quarter: 2017Q2

REPORT INFORMATION
  Report Type: Spontaneous
  Country: US (occurrence: US)
  Receive Date: 20170612
  Receipt Date: 20170612
  Transmission Date: 20170830
  Serious: Yes (Other)
  Sender: FDA-Public Use
  Company Number: US-DRREDDYS-USA/USA/17/0091221

PATIENT
  Age: 17 Year
  Sex: Male
  Weight: 65.77 kg

DRUGS (3)
  1. ZENATANE [Suspect]
     Active Substance: ISOTRETINOIN
     Indication: ACNE
     Route: 048
     Dates: start: 20161109, end: 2017
  2. MYORISAN [Suspect]
     Active Substance: ISOTRETINOIN
     Indication: ACNE
     Route: 048
     Dates: start: 20170421
  3. CLARAVIS [Suspect]
     Active Substance: ISOTRETINOIN
     Indication: ACNE
     Dates: start: 20170307

REACTIONS (11)
  - Rash [Recovered/Resolved]
  - Fear [Not Recovered/Not Resolved]
  - Scab [Unknown]
  - Lip dry [Unknown]
  - Epistaxis [Recovered/Resolved]
  - Dry skin [Unknown]
  - Adverse event [Unknown]
  - Lip haemorrhage [Recovered/Resolved]
  - Skin exfoliation [Unknown]
  - Acne cystic [Not Recovered/Not Resolved]
  - Drug dose omission [Unknown]

NARRATIVE: CASE EVENT DATE: 201704
